FAERS Safety Report 7996016-9 (Version None)
Quarter: 2011Q4

REPORT INFORMATION
  Report Type: 
  Country: None (occurrence: None)
  Receive Date: 20111220
  Receipt Date: 20111207
  Transmission Date: 20120403
  Serious: Yes (Hospitalization, Other)
  Sender: FDA-Public Use
  Company Number: PHHY2011FR107534

PATIENT
  Sex: Male

DRUGS (2)
  1. AFINITOR [Suspect]
     Indication: RENAL CELL CARCINOMA
     Dosage: 10 MG, DAILY
     Route: 048
     Dates: start: 20100801
  2. AFINITOR [Suspect]
     Dosage: 05 MG, DAILY
     Route: 048
     Dates: start: 20101001, end: 20110921

REACTIONS (3)
  - COUGH [None]
  - LUNG DISORDER [None]
  - DYSPNOEA [None]
